FAERS Safety Report 7599237-2 (Version None)
Quarter: 2011Q3

REPORT INFORMATION
  Report Type: 
  Country: None (occurrence: None)
  Receive Date: 20110711
  Receipt Date: 20110629
  Transmission Date: 20111222
  Serious: Yes (Other)
  Sender: FDA-Public Use
  Company Number: US-BAYER-2011-020664

PATIENT
  Age: 19 Year
  Sex: Female
  Weight: 54.649 kg

DRUGS (3)
  1. LIDOCAINE [Concomitant]
  2. DICLOFENAC [Concomitant]
  3. MIRENA [Suspect]
     Indication: CONTRACEPTION
     Dosage: 20 ?G, CONT
     Route: 015
     Dates: start: 20110118, end: 20110223

REACTIONS (1)
  - DEVICE DISLOCATION [None]
